FAERS Safety Report 8960703 (Version 2)
Quarter: 2014Q2

REPORT INFORMATION
  Report Type: Spontaneous
  Country: US (occurrence: US)
  Receive Date: 20121212
  Receipt Date: 20131024
  Transmission Date: 20141212
  Serious: No
  Sender: FDA-Public Use
  Company Number: US-PFIZER INC-2012313277

PATIENT
  Age: 70 Year
  Sex: Female
  Weight: 103 kg

DRUGS (1)
  1. METHOTREXATE SODIUM [Suspect]

REACTIONS (1)
  - Drug hypersensitivity [Unknown]
